FAERS Safety Report 13226796 (Version 4)
Quarter: 2018Q4

REPORT INFORMATION
  Report Type: Spontaneous
  Country: US (occurrence: US)
  Receive Date: 20170213
  Receipt Date: 20181122
  Transmission Date: 20190204
  Serious: Yes (Hospitalization, Other)
  Sender: FDA-Public Use
  Company Number: US-ASTRAZENECA-2017SE14260

PATIENT
  Age: 66 Year
  Sex: Female
  Weight: 86.6 kg

DRUGS (4)
  1. LANTUS [Concomitant]
     Active Substance: INSULIN GLARGINE
     Indication: DIABETES MELLITUS
  2. LANTUS [Concomitant]
     Active Substance: INSULIN GLARGINE
     Indication: DIABETES MELLITUS
  3. BYDUREON [Suspect]
     Active Substance: EXENATIDE
     Indication: TYPE 2 DIABETES MELLITUS
     Route: 058
  4. NOVOLIN R [Concomitant]
     Active Substance: INSULIN HUMAN
     Indication: DIABETES MELLITUS

REACTIONS (10)
  - Injection site haemorrhage [Unknown]
  - Injection site rash [Unknown]
  - Urticaria [Unknown]
  - Product quality issue [Unknown]
  - Wrong technique in device usage process [Unknown]
  - Blood glucose decreased [Unknown]
  - Bronchitis [Unknown]
  - Oxygen saturation decreased [Unknown]
  - Pneumonia [Unknown]
  - Product use issue [Unknown]

NARRATIVE: CASE EVENT DATE: 20161226
